FAERS Safety Report 21258761 (Version 2)
Quarter: 2022Q4

REPORT INFORMATION
  Report Type: Spontaneous
  Country: GB (occurrence: GB)
  Receive Date: 20220826
  Receipt Date: 20221014
  Transmission Date: 20230113
  Serious: Yes (Death, Life-Threatening, Hospitalization, Other)
  Sender: FDA-Public Use
  Company Number: None

PATIENT
  Age: 75 Year
  Sex: Male

DRUGS (1)
  1. ANAGRELIDE [Suspect]
     Active Substance: ANAGRELIDE
     Indication: Thrombocytosis
     Route: 065
     Dates: start: 20210813

REACTIONS (7)
  - Cardiac failure [Fatal]
  - Brain natriuretic peptide increased [Unknown]
  - Arrhythmia [Fatal]
  - Cardiac arrest [Fatal]
  - Multiple organ dysfunction syndrome [Fatal]
  - Cough [Fatal]
  - Dyspnoea [Fatal]
